FAERS Safety Report 8182995-6 (Version None)
Quarter: 2012Q1

REPORT INFORMATION
  Report Type: 
  Country: None (occurrence: None)
  Receive Date: 20120305
  Receipt Date: 20111114
  Transmission Date: 20120608
  Serious: No
  Sender: FDA-Public Use
  Company Number: PR-BRISTOL-MYERS SQUIBB COMPANY-16237737

PATIENT

DRUGS (1)
  1. KOMBIGLYZE XR [Suspect]

REACTIONS (1)
  - HYPOGLYCAEMIA [None]
